FAERS Safety Report 5855683-6 (Version None)
Quarter: 2008Q3

REPORT INFORMATION
  Report Type: 
  Country: None (occurrence: None)
  Receive Date: 20080824
  Receipt Date: 20080813
  Transmission Date: 20090109
  Serious: Yes (Hospitalization)
  Sender: FDA-Public Use
  Company Number: FR-JNJFOC-20080803245

PATIENT
  Age: 47 Year
  Sex: Male

DRUGS (3)
  1. REMICADE [Suspect]
     Route: 042
  2. REMICADE [Suspect]
     Dosage: INFUSION 2
     Route: 042
  3. REMICADE [Suspect]
     Indication: ANKYLOSING SPONDYLITIS
     Route: 042

REACTIONS (7)
  - CHEST PAIN [None]
  - CHILLS [None]
  - CHOLELITHIASIS [None]
  - HOSPITALISATION [None]
  - INFUSION RELATED REACTION [None]
  - RESPIRATORY DISORDER [None]
  - TACHYCARDIA [None]
